FAERS Safety Report 13526806 (Version 1)
Quarter: 2017Q2

REPORT INFORMATION
  Report Type: Spontaneous
  Country: US (occurrence: US)
  Receive Date: 20170509
  Receipt Date: 20170509
  Transmission Date: 20170830
  Serious: Yes (Other)
  Sender: FDA-Public Use
  Company Number: US-AMGEN-USASP2017067991

PATIENT
  Age: 40 Year
  Sex: Female
  Weight: 125.17 kg

DRUGS (11)
  1. CELECOXIB. [Concomitant]
     Active Substance: CELECOXIB
     Dosage: 200 MG, UNK
  2. VITAMIN D [Concomitant]
     Active Substance: CHOLECALCIFEROL
     Dosage: 2000 UNIT, UNK
  3. HCQ [Concomitant]
     Active Substance: HYDROXYCHLOROQUINE SULFATE
  4. LEVOTHYROXINE SODIUM. [Concomitant]
     Active Substance: LEVOTHYROXINE SODIUM
     Dosage: 75 MUG, UNK
  5. ENBREL [Suspect]
     Active Substance: ETANERCEPT
     Indication: PRODUCT USED FOR UNKNOWN INDICATION
     Dosage: UNK
     Route: 065
  6. ACETAMINOPHEN W/HYDROCODONE [Concomitant]
     Active Substance: ACETAMINOPHEN\HYDROCODONE
     Dosage: 5-325 MG
  7. ESCITALOPRAM OXALATE. [Concomitant]
     Active Substance: ESCITALOPRAM OXALATE
     Dosage: 10 MG, UNK
  8. METHYLPREDNISOLONE. [Concomitant]
     Active Substance: METHYLPREDNISOLONE
     Dosage: 4 MG, UNK
  9. ORENCIA [Suspect]
     Active Substance: ABATACEPT
     Indication: PRODUCT USED FOR UNKNOWN INDICATION
     Dosage: UNK
     Route: 065
  10. ARAVA [Suspect]
     Active Substance: LEFLUNOMIDE
     Indication: PRODUCT USED FOR UNKNOWN INDICATION
     Dosage: UNK
     Route: 065
  11. ALPRAZOLAM. [Concomitant]
     Active Substance: ALPRAZOLAM
     Dosage: 0.5 MG, UNK

REACTIONS (15)
  - Drug ineffective [Unknown]
  - Injection site pain [Unknown]
  - Cholecystectomy [Unknown]
  - Polyarthritis [Unknown]
  - Diarrhoea [Not Recovered/Not Resolved]
  - Blood cholesterol abnormal [Unknown]
  - Antinuclear antibody positive [Unknown]
  - Rheumatoid arthritis [Not Recovered/Not Resolved]
  - Injection site bruising [Unknown]
  - Weight decreased [Unknown]
  - Loss of personal independence in daily activities [Unknown]
  - Dry mouth [Not Recovered/Not Resolved]
  - White blood cell count decreased [Unknown]
  - Bronchitis [Unknown]
  - Streptococcal infection [Unknown]

NARRATIVE: CASE EVENT DATE: 2009
